FAERS Safety Report 7806155-0 (Version None)
Quarter: 2011Q4

REPORT INFORMATION
  Report Type: 
  Country: None (occurrence: None)
  Receive Date: 20111011
  Receipt Date: 20110930
  Transmission Date: 20120403
  Serious: Yes (Hospitalization)
  Sender: FDA-Public Use
  Company Number: US-US-EMD SERONO, INC.-7086981

PATIENT
  Sex: Female

DRUGS (2)
  1. REBIF [Suspect]
     Indication: MULTIPLE SCLEROSIS
     Route: 058
     Dates: start: 20101028
  2. NAPROXEN (ALEVE) [Concomitant]
     Indication: PREMEDICATION

REACTIONS (9)
  - MUSCULAR WEAKNESS [None]
  - INJECTION SITE ERYTHEMA [None]
  - HYSTERECTOMY [None]
  - DEPRESSION [None]
  - INJECTION SITE PAIN [None]
  - LIVER FUNCTION TEST ABNORMAL [None]
  - INFLUENZA LIKE ILLNESS [None]
  - HOT FLUSH [None]
  - POST PROCEDURAL COMPLICATION [None]
